FAERS Safety Report 6923255-8 (Version None)
Quarter: 2010Q3

REPORT INFORMATION
  Report Type: 
  Country: None (occurrence: None)
  Receive Date: 20100813
  Receipt Date: 20100803
  Transmission Date: 20110219
  Serious: Yes (Hospitalization)
  Sender: FDA-Public Use
  Company Number: JP-ABBOTT-10P-087-0661647-00

PATIENT
  Sex: Female
  Weight: 37.7 kg

DRUGS (9)
  1. HUMIRA [Suspect]
     Indication: RHEUMATOID ARTHRITIS
     Route: 058
     Dates: start: 20091226, end: 20100508
  2. METHOTREXATE [Concomitant]
     Indication: RHEUMATOID ARTHRITIS
  3. PREDNISOLONE [Concomitant]
     Indication: RHEUMATOID ARTHRITIS
     Route: 048
     Dates: start: 20100417
  4. PREDNISOLONE [Concomitant]
     Route: 048
     Dates: end: 20100416
  5. FOLIC ACID [Concomitant]
     Indication: ADVERSE DRUG REACTION
  6. FOLIC ACID [Concomitant]
     Indication: PROPHYLAXIS
  7. SODIUM RISEDRONATE HYDRATE [Concomitant]
     Indication: OSTEOPOROSIS PROPHYLAXIS
  8. RABEPRAZOLE SODIUM [Concomitant]
     Indication: PROPHYLAXIS AGAINST GASTROINTESTINAL ULCER
  9. MAGNESIUM OXIDE [Concomitant]
     Indication: GASTRITIS PROPHYLAXIS

REACTIONS (1)
  - SCIATICA [None]
